FAERS Safety Report 6520881-5 (Version None)
Quarter: 2009Q4

REPORT INFORMATION
  Report Type: 
  Country: None (occurrence: None)
  Receive Date: 20091229
  Receipt Date: 20091216
  Transmission Date: 20100525
  Serious: No
  Sender: FDA-Public Use
  Company Number: US-B.I. PHARMACEUTICALS,INC./RIDGEFIELD-2007-BP-25945BP

PATIENT
  Sex: Male

DRUGS (8)
  1. SPIRIVA [Suspect]
     Indication: CHRONIC OBSTRUCTIVE PULMONARY DISEASE
     Route: 055
     Dates: start: 20060301
  2. SPIRIVA [Suspect]
     Indication: EMPHYSEMA
  3. SPIRIVA [Suspect]
     Indication: BRONCHITIS CHRONIC
  4. SPIRIVA [Suspect]
     Indication: ASTHMA
  5. SPIRIVA [Suspect]
     Indication: DYSPNOEA
  6. ADVAIR DISKUS 100/50 [Concomitant]
  7. ATROVENT [Concomitant]
  8. COMBIVENT [Concomitant]

REACTIONS (1)
  - DRUG INEFFECTIVE [None]
